FAERS Safety Report 23462475 (Version 1)
Quarter: 2024Q1

REPORT INFORMATION
  Report Type: Spontaneous
  Country: FR (occurrence: FR)
  Receive Date: 20240131
  Receipt Date: 20240131
  Transmission Date: 20240410
  Serious: Yes (Other)
  Sender: FDA-Public Use
  Company Number: FR-ANIPHARMA-2024-FR-000024

PATIENT
  Age: 40 Year
  Sex: Female

DRUGS (1)
  1. CANDESARTAN CILEXETIL AND HYDROCHLOROTHIAZIDE [Suspect]
     Active Substance: CANDESARTAN CILEXETIL\HYDROCHLOROTHIAZIDE
     Indication: Hypertension
     Dosage: 1 DF DAILY
     Route: 048
     Dates: start: 20181119, end: 20230519

REACTIONS (1)
  - Lip squamous cell carcinoma [Unknown]

NARRATIVE: CASE EVENT DATE: 20231211
